FAERS Safety Report 13682989 (Version 1)
Quarter: 2017Q2

REPORT INFORMATION
  Report Type: Spontaneous
  Country: TR (occurrence: TR)
  Receive Date: 20170623
  Receipt Date: 20170623
  Transmission Date: 20170830
  Serious: Yes (Death, Other)
  Sender: FDA-Public Use
  Company Number: TR-JNJFOC-20170610906

PATIENT
  Age: 57 Year
  Sex: Male
  Weight: 75 kg

DRUGS (7)
  1. LASIX [Concomitant]
     Active Substance: FUROSEMIDE
     Indication: UNEVALUABLE EVENT
     Route: 042
     Dates: start: 20170120, end: 20170124
  2. RAMIPRIL. [Concomitant]
     Active Substance: RAMIPRIL
     Indication: UNEVALUABLE EVENT
     Route: 065
     Dates: start: 20170131, end: 20170315
  3. MONOKET [Concomitant]
     Active Substance: ISOSORBIDE MONONITRATE
     Indication: UNEVALUABLE EVENT
     Route: 065
     Dates: start: 20170120, end: 20170315
  4. IBRUTINIB [Suspect]
     Active Substance: IBRUTINIB
     Indication: CHRONIC LYMPHOCYTIC LEUKAEMIA
     Route: 048
     Dates: start: 20151020, end: 20170114
  5. PREDNOL [Concomitant]
     Active Substance: METHYLPREDNISOLONE
     Indication: UNEVALUABLE EVENT
     Route: 065
     Dates: start: 20170120, end: 20170215
  6. NIVOLUMAB [Concomitant]
     Active Substance: NIVOLUMAB
     Indication: UNEVALUABLE EVENT
     Route: 042
  7. CARVEXAL [Concomitant]
     Indication: UNEVALUABLE EVENT
     Route: 065
     Dates: start: 20170120, end: 20170315

REACTIONS (2)
  - Richter^s syndrome [Fatal]
  - Cardiac failure [Recovered/Resolved]

NARRATIVE: CASE EVENT DATE: 20170120
